FAERS Safety Report 5846705-7 (Version None)
Quarter: 2008Q3

REPORT INFORMATION
  Report Type: 
  Country: None (occurrence: None)
  Receive Date: 20080815
  Receipt Date: 20080811
  Transmission Date: 20090109
  Serious: Yes (Hospitalization)
  Sender: FDA-Public Use
  Company Number: FR-AVENTIS-200812962FR

PATIENT
  Age: 88 Year
  Sex: Female

DRUGS (5)
  1. LASIX [Suspect]
     Indication: CARDIAC FAILURE
     Route: 048
     Dates: end: 20080509
  2. TRIATEC                            /00885601/ [Suspect]
     Indication: CARDIAC FAILURE
     Route: 048
     Dates: end: 20080509
  3. ARICEPT [Suspect]
     Route: 048
     Dates: end: 20080407
  4. ARICEPT [Suspect]
     Route: 048
     Dates: start: 20080407, end: 20080509
  5. NORSET [Concomitant]
     Route: 048

REACTIONS (2)
  - ANOREXIA [None]
  - HALLUCINATION, VISUAL [None]
